FAERS Safety Report 11720507 (Version 1)
Quarter: 2015Q4

REPORT INFORMATION
  Report Type: Spontaneous
  Country: FR (occurrence: FR)
  Receive Date: 20151110
  Receipt Date: 20151110
  Transmission Date: 20160304
  Serious: Yes (Life-Threatening, Hospitalization, Other)
  Sender: FDA-Public Use
  Company Number: FR-ELI_LILLY_AND_COMPANY-FR201510009023

PATIENT
  Age: 53 Year
  Sex: Male

DRUGS (6)
  1. ACEBUTOLOL [Concomitant]
     Active Substance: ACEBUTOLOL
     Indication: MYOCARDIAL INFARCTION
     Dosage: UNK, UNKNOWN
     Route: 065
  2. ODRIK [Concomitant]
     Active Substance: TRANDOLAPRIL
     Indication: MYOCARDIAL INFARCTION
     Dosage: UNK, UNKNOWN
     Route: 065
  3. CYMBALTA [Suspect]
     Active Substance: DULOXETINE HYDROCHLORIDE
     Indication: DEPRESSION
     Dosage: UNK, UNKNOWN
     Route: 048
     Dates: start: 2008, end: 20081106
  4. PARACETAMOL [Suspect]
     Active Substance: ACETAMINOPHEN
     Indication: GASTROENTERITIS
     Dosage: 9 G, QD
     Dates: start: 200810, end: 20081106
  5. KARDEGIC [Concomitant]
     Active Substance: ASPIRIN LYSINE
     Indication: MYOCARDIAL INFARCTION
  6. CRESTOR [Concomitant]
     Active Substance: ROSUVASTATIN CALCIUM
     Indication: MYOCARDIAL INFARCTION
     Dosage: UNK, UNKNOWN
     Route: 065

REACTIONS (9)
  - Hepatic encephalopathy [Recovered/Resolved with Sequelae]
  - Renal failure [Unknown]
  - Seizure [Unknown]
  - Hepatitis A [Unknown]
  - Hepatic steatosis [Unknown]
  - Hepatitis fulminant [Recovered/Resolved with Sequelae]
  - Pulmonary oedema [Unknown]
  - Lung disorder [Unknown]
  - Gastroenteritis [Unknown]

NARRATIVE: CASE EVENT DATE: 200810
